FAERS Safety Report 4504435-8 (Version None)
Quarter: 2004Q4

REPORT INFORMATION
  Report Type: 
  Country: None (occurrence: None)
  Receive Date: 20041116
  Receipt Date: 20041110
  Transmission Date: 20050328
  Serious: Yes (Death)
  Sender: FDA-Public Use
  Company Number: 04-284

PATIENT
  Age: 57 Year
  Sex: Female
  Weight: 56.6996 kg

DRUGS (3)
  1. DEXAMETHASONE [Suspect]
     Indication: RADICULOPATHY
     Dosage: TAPERED DOSE OF 32MGMS OVER 4 CONSECUTIVE DAYS; 16, 8, 4 AND 4
     Dates: start: 20030719, end: 20040722
  2. LITHIUM [Concomitant]
  3. SONATA [Concomitant]

REACTIONS (4)
  - COMPLETED SUICIDE [None]
  - DROWNING [None]
  - POST PROCEDURAL COMPLICATION [None]
  - PSYCHOTIC DISORDER [None]
